FAERS Safety Report 5486636-8 (Version None)
Quarter: 2007Q4

REPORT INFORMATION
  Report Type: 
  Country: None (occurrence: None)
  Receive Date: 20071016
  Receipt Date: 20071004
  Transmission Date: 20080405
  Serious: Yes (Other)
  Sender: FDA-Public Use
  Company Number: FR-AMGEN-US247233

PATIENT
  Sex: Male

DRUGS (2)
  1. ENBREL [Suspect]
     Indication: ANKYLOSING SPONDYLITIS
     Dosage: LYOPHILIZED (50 MG ONCE WEEKLY)
     Route: 058
     Dates: start: 20060301, end: 20070101
  2. ENBREL [Suspect]
     Dosage: PREFILLED SYRINGE (50 MG ONCE WEEKLY)
     Route: 058
     Dates: start: 20070101

REACTIONS (2)
  - MACULAR OEDEMA [None]
  - UVEITIS [None]
